FAERS Safety Report 5046339-0 (Version None)
Quarter: 2006Q3

REPORT INFORMATION
  Report Type: 
  Country: None (occurrence: None)
  Receive Date: 20060710
  Receipt Date: 20060630
  Transmission Date: 20061208
  Serious: Yes (Hospitalization)
  Sender: FDA-Public Use
  Company Number: PHEH2006US08505

PATIENT
  Age: 73 Year
  Sex: Female

DRUGS (11)
  1. GLEEVEC [Suspect]
     Indication: CHRONIC MYELOID LEUKAEMIA
     Dosage: 400 MG, QD
     Route: 048
     Dates: start: 20030201
  2. GLEEVEC [Suspect]
     Dosage: 400 MG, BID
     Route: 048
     Dates: start: 20050823
  3. ALLOPURINOL [Concomitant]
     Dosage: 100 MG, QD
     Route: 048
  4. SYNTHROID [Concomitant]
     Indication: HYPOTHYROIDISM
     Dosage: 0.1 MG, QD
     Route: 048
  5. LASIX [Concomitant]
  6. NORVASC [Concomitant]
     Dosage: 5 MG, QD
     Route: 048
  7. COLCHICINE [Concomitant]
     Dosage: 0.6 MG, Q2H PRN
     Route: 048
  8. PREVACID [Concomitant]
     Dosage: 30 MG, QD
     Route: 048
  9. ACETYLSALICYLIC ACID SRT [Concomitant]
     Dosage: 81 MG, QD
     Route: 048
  10. ANTACID LIQUID PLUS SIMETHICONE [Concomitant]
     Dosage: 30 ML, Q4-6H, PRN
     Route: 048
  11. COLACE [Concomitant]
     Dosage: 100 MG, BID, PRN
     Route: 048

REACTIONS (12)
  - ABDOMINAL HERNIA [None]
  - ABDOMINAL PAIN [None]
  - ABSCESS INTESTINAL [None]
  - ARTHRITIS [None]
  - COLOSTOMY [None]
  - DIVERTICULAR PERFORATION [None]
  - DYSURIA [None]
  - ENTEROCOCCAL INFECTION [None]
  - INCISIONAL HERNIA REPAIR [None]
  - PERIORBITAL OEDEMA [None]
  - PERITONITIS BACTERIAL [None]
  - SIGMOIDECTOMY [None]
